FAERS Safety Report 4293375-8 (Version None)
Quarter: 2004Q1

REPORT INFORMATION
  Report Type: 
  Country: None (occurrence: None)
  Receive Date: 20040210
  Receipt Date: 20040129
  Transmission Date: 20041129
  Serious: No
  Sender: FDA-Public Use
  Company Number: S04-USA-00359-01

PATIENT
  Age: 40 Year
  Sex: Female

DRUGS (5)
  1. CELEXA [Suspect]
     Indication: ANXIETY
     Dosage: 20 MG QD PO
     Route: 048
     Dates: start: 20020101
  2. CELEXA [Suspect]
     Indication: DEPRESSION
     Dosage: 20 MG QD PO
     Route: 048
     Dates: start: 20020101
  3. CELEXA [Suspect]
     Indication: ANXIETY
     Dosage: 40 MG PRN PO
     Route: 048
  4. CELEXA [Suspect]
     Indication: DEPRESSION
     Dosage: 40 MG PRN PO
     Route: 048
  5. THYROID REPLACEMENT (NOS) [Concomitant]

REACTIONS (2)
  - BREAST CANCER [None]
  - INTRACRANIAL ANEURYSM [None]
